FAERS Safety Report 25972064 (Version 1)
Quarter: 2025Q4

REPORT INFORMATION
  Report Type: Spontaneous
  Country: IN (occurrence: IN)
  Receive Date: 20251029
  Receipt Date: 20251029
  Transmission Date: 20260119
  Serious: Yes (Hospitalization, Other)
  Sender: LUPIN
  Company Number: IN-LUPIN PHARMACEUTICALS INC.-2025-09728

PATIENT
  Age: 15 Day
  Sex: Male

DRUGS (3)
  1. CEPHALEXIN [Suspect]
     Active Substance: CEPHALEXIN
     Indication: Infection prophylaxis
     Dosage: UNK
  2. CEFOTAXIME [Suspect]
     Active Substance: CEFOTAXIME SODIUM
     Indication: Meningitis
     Dosage: 50 MILLIGRAM/KILOGRAM, Q8H, VIA PERIPHERAL CANNULA IN THE LEFT FOOT
  3. LINEZOLID [Suspect]
     Active Substance: LINEZOLID
     Indication: Infection prophylaxis
     Dosage: UNK

REACTIONS (3)
  - Drug eruption [Recovering/Resolving]
  - Gangrene [Recovering/Resolving]
  - Drug ineffective [Unknown]
